FAERS Safety Report 14885771 (Version 1)
Quarter: 2018Q2

REPORT INFORMATION
  Report Type: Report from Study
  Country: None (occurrence: TR)
  Receive Date: 20180512
  Receipt Date: 20180512
  Transmission Date: 20180711
  Serious: Yes (Hospitalization)
  Sender: FDA-Public Use
  Company Number: TR-ABBVIE-18K-161-2352081-00

PATIENT
  Age: 63 Year
  Sex: Male
  Weight: 75 kg

DRUGS (9)
  1. MADOPAR HBS [Concomitant]
     Active Substance: BENSERAZIDE HYDROCHLORIDE\LEVODOPA
     Indication: PARKINSON^S DISEASE
     Route: 048
     Dates: start: 20180508
  2. DUODOPA [Suspect]
     Active Substance: CARBIDOPA\LEVODOPA
     Indication: PARKINSON^S DISEASE
     Dosage: MORNING DOSE(ML):600?CONTINUOUS DOSE(ML): 2,70?EXTRA DOSE(ML): 0,50
     Route: 050
     Dates: start: 20180508
  3. SANELOC [Concomitant]
     Active Substance: METOPROLOL
     Indication: STENT PLACEMENT
     Route: 048
     Dates: start: 2013
  4. PINGEL [Concomitant]
     Active Substance: CLOPIDOGREL BISULFATE
     Indication: STENT PLACEMENT
     Route: 048
     Dates: start: 2013
  5. MOTILIUM [Concomitant]
     Active Substance: DOMPERIDONE
     Indication: GASTROINTESTINAL HYPOMOTILITY
     Route: 048
     Dates: start: 2016
  6. TRIVASTAL [Concomitant]
     Active Substance: PIRIBEDIL
     Indication: PARKINSON^S DISEASE
     Route: 048
     Dates: start: 2015
  7. PREMIUM PLUS [Concomitant]
     Indication: STENT PLACEMENT
     Route: 048
     Dates: start: 2013
  8. GLIFOR [Concomitant]
     Active Substance: METFORMIN HYDROCHLORIDE
     Indication: DIABETES MELLITUS
     Route: 048
     Dates: start: 2008
  9. PROGAS [Concomitant]
     Indication: PROPHYLAXIS
     Route: 048
     Dates: start: 2016

REACTIONS (2)
  - C-reactive protein increased [Unknown]
  - Hypotension [Recovered/Resolved]

NARRATIVE: CASE EVENT DATE: 20180510
